FAERS Safety Report 7963422-8 (Version None)
Quarter: 2011Q4

REPORT INFORMATION
  Report Type: 
  Country: None (occurrence: None)
  Receive Date: 20111122
  Receipt Date: 20110721
  Transmission Date: 20120403
  Serious: No
  Sender: FDA-Public Use
  Company Number: PHHY2011US66711

PATIENT
  Age: 51 Year
  Sex: Female
  Weight: 90.7 kg

DRUGS (10)
  1. GILENYA [Suspect]
     Dosage: 0.5 MG, EVERY DAY, ORAL, 0.5 MG, QOD, ORAL, 0.5 MG, DAILY, ORAL
     Route: 048
  2. LISINOPRIL [Concomitant]
  3. CALCIUM CARBONATE [Concomitant]
  4. MULTI-VITAMINS [Concomitant]
  5. BACLOFEN [Concomitant]
  6. TIZANIDINE HCL [Concomitant]
  7. VITAMIN D [Concomitant]
  8. ZOLPIDEM [Concomitant]
  9. METHYLPHENIDATE HCL [Concomitant]
  10. SIMVASTATIN [Concomitant]

REACTIONS (2)
  - CHEST DISCOMFORT [None]
  - MEDICATION ERROR [None]
